FAERS Safety Report 26144229 (Version 1)
Quarter: 2025Q4

REPORT INFORMATION
  Report Type: Report from Study
  Country: EU (occurrence: EU)
  Receive Date: 20251211
  Receipt Date: 20251211
  Transmission Date: 20260118
  Serious: Yes (Death)
  Sender: RANBAXY
  Company Number: EU-SUN PHARMACEUTICAL INDUSTRIES LTD-2025RR-541310

PATIENT
  Age: 80 Year
  Sex: Female

DRUGS (8)
  1. PIPERACILLIN SODIUM\TAZOBACTAM SODIUM [Suspect]
     Active Substance: PIPERACILLIN SODIUM\TAZOBACTAM SODIUM
     Indication: Antibiotic therapy
     Dosage: UNK
     Route: 065
  2. PIPERACILLIN SODIUM\TAZOBACTAM SODIUM [Suspect]
     Active Substance: PIPERACILLIN SODIUM\TAZOBACTAM SODIUM
     Indication: Escherichia infection
  3. AMPHOTERICIN B [Suspect]
     Active Substance: AMPHOTERICIN B
     Indication: Antibiotic therapy
     Dosage: 3 MILLIGRAM/KILOGRAM, EVERY 24 HOURS
     Route: 065
  4. AMPHOTERICIN B [Suspect]
     Active Substance: AMPHOTERICIN B
     Indication: Escherichia infection
  5. ERAVACYCLINE [Suspect]
     Active Substance: ERAVACYCLINE
     Indication: Antibiotic therapy
     Dosage: 1 MILLIGRAM/KILOGRAM, EVERY 12 HOURS
     Route: 065
  6. ERAVACYCLINE [Suspect]
     Active Substance: ERAVACYCLINE
     Indication: Escherichia infection
     Dosage: OVER THERAPEUTIC CONCENTRATION
     Route: 065
  7. LINEZOLID [Suspect]
     Active Substance: LINEZOLID
     Indication: Antibiotic therapy
     Dosage: 600 MILLIGRAM, EVERY 12 HOURS
     Route: 065
  8. LINEZOLID [Suspect]
     Active Substance: LINEZOLID
     Indication: Escherichia infection

REACTIONS (1)
  - Hepatotoxicity [Fatal]
